FAERS Safety Report 6636494-0 (Version None)
Quarter: 2010Q1

REPORT INFORMATION
  Report Type: 
  Country: None (occurrence: None)
  Receive Date: 20100226
  Receipt Date: 20090609
  Transmission Date: 20100710
  Serious: Yes (Other)
  Sender: FDA-Public Use
  Company Number: WAES 0906USA02292

PATIENT
  Age: 92 Year
  Sex: Female

DRUGS (1)
  1. PRINIVIL [Suspect]
     Indication: HYPERTENSION
     Dosage: 10 MG/PO
     Route: 048
     Dates: start: 20090521, end: 20090601

REACTIONS (2)
  - DIZZINESS [None]
  - NAUSEA [None]
